FAERS Safety Report 6039723-X (Version None)
Quarter: 2009Q1

REPORT INFORMATION
  Report Type: 
  Country: None (occurrence: None)
  Receive Date: 20090116
  Receipt Date: 20090107
  Transmission Date: 20090719
  Serious: Yes (Other)
  Sender: FDA-Public Use
  Company Number: PHEH2009US00554

PATIENT
  Sex: Female

DRUGS (9)
  1. ZOMETA [Suspect]
     Indication: MULTIPLE MYELOMA
     Dosage: 4 MG, QMO
     Route: 042
     Dates: start: 20051201, end: 20060501
  2. PROCRIT                            /00909301/ [Concomitant]
  3. SINGULAIR [Concomitant]
  4. ADVAIR DISKUS 100/50 [Concomitant]
  5. COMBIVENT                               /GFR/ [Concomitant]
  6. LYRICA [Concomitant]
  7. FUROSEMIDE [Concomitant]
  8. COUMADIN [Concomitant]
  9. DECADRON                                /CAN/ [Concomitant]

REACTIONS (2)
  - BONE DISORDER [None]
  - TOOTH EXTRACTION [None]
